FAERS Safety Report 18128593 (Version 4)
Quarter: 2021Q2

REPORT INFORMATION
  Report Type: Spontaneous
  Country: PT (occurrence: PT)
  Receive Date: 20200810
  Receipt Date: 20210525
  Transmission Date: 20210717
  Serious: Yes (Other)
  Sender: FDA-Public Use
  Company Number: PT-AUROBINDO-AUR-APL-2020-038178

PATIENT
  Age: 61 Year
  Sex: Female
  Weight: 98 kg

DRUGS (6)
  1. ROCALTROL [Concomitant]
     Active Substance: CALCITRIOL
     Indication: OSTEOPOROSIS POSTMENOPAUSAL
     Dosage: 0.25 MICROGRAM
     Route: 048
  2. ARTERIN [Concomitant]
     Indication: HIGH DENSITY LIPOPROTEIN NORMAL
     Dosage: 10 MILLIGRAM
     Route: 048
  3. EZETIMIBE GENERIS 10 MG TABLETS [Suspect]
     Active Substance: EZETIMIBE
     Indication: LOW DENSITY LIPOPROTEIN INCREASED
     Dosage: 10 MILLIGRAM
     Route: 048
     Dates: start: 20200714
  4. AMLODIPINE;PERINDOPRIL [Concomitant]
     Active Substance: AMLODIPINE\PERINDOPRIL
     Indication: HYPERTENSION
     Dosage: 8 MG + 2.5 MG
     Route: 048
  5. CALCIUM + VITAMIN D3 [Concomitant]
     Active Substance: CALCIUM\CHOLECALCIFEROL
     Indication: OSTEOPOROSIS POSTMENOPAUSAL
     Dosage: 150 MG + 400 IU
     Route: 048
  6. EUTIROX [Concomitant]
     Active Substance: LEVOTHYROXINE SODIUM
     Indication: HYPOTHYROIDISM
     Dosage: 25 MILLIGRAM
     Route: 048

REACTIONS (4)
  - Areflexia [Recovering/Resolving]
  - Asthenia [Recovering/Resolving]
  - Dizziness [Recovering/Resolving]
  - Mental impairment [Recovering/Resolving]

NARRATIVE: CASE EVENT DATE: 20200714
